FAERS Safety Report 8914451 (Version 1)
Quarter: 2012Q4

REPORT INFORMATION
  Report Type: 
  Country: CN (occurrence: CN)
  Receive Date: 20121119
  Receipt Date: 20121119
  Transmission Date: 20130627
  Serious: Yes (Hospitalization, Other)
  Sender: FDA-Public Use
  Company Number: CN-PFIZER INC-2012284352

PATIENT

DRUGS (2)
  1. ZAVEDOS [Suspect]
     Indication: ACUTE LEUKAEMIA
     Dosage: 15 mg, UNK
     Route: 041
     Dates: start: 20121018, end: 20121019
  2. ZAVEDOS [Suspect]
     Dosage: 10 mg, UNK
     Route: 041
     Dates: start: 20121020

REACTIONS (7)
  - Lung infection [Not Recovered/Not Resolved]
  - Cardiac failure [Not Recovered/Not Resolved]
  - Anuria [Not Recovered/Not Resolved]
  - White blood cell count decreased [Not Recovered/Not Resolved]
  - Pyrexia [Not Recovered/Not Resolved]
  - Mouth ulceration [Not Recovered/Not Resolved]
  - Abdominal distension [Not Recovered/Not Resolved]
